FAERS Safety Report 7604441-0 (Version None)
Quarter: 2011Q3

REPORT INFORMATION
  Report Type: 
  Country: None (occurrence: None)
  Receive Date: 20110712
  Receipt Date: 20110705
  Transmission Date: 20111222
  Serious: Yes (Other)
  Sender: FDA-Public Use
  Company Number: US-PFIZER INC-2011150634

PATIENT
  Sex: Female
  Weight: 168 kg

DRUGS (7)
  1. ZOCOR [Concomitant]
     Indication: HYPERCHOLESTEROLAEMIA
     Dosage: 40 MG, 1X/DAY
     Route: 048
  2. LEVOTHYROXINE [Concomitant]
     Indication: HYPOTHYROIDISM
     Dosage: 0.05 MG, UNK
  3. FEXOFENADINE [Concomitant]
     Indication: HYPERSENSITIVITY
     Dosage: 180 MG, UNK
  4. EFFEXOR [Concomitant]
     Dosage: UNK
     Route: 048
  5. TIMOLOL [Concomitant]
     Indication: TYPE 1 DIABETES MELLITUS
     Dosage: UNK
  6. CEFDINIR [Suspect]
     Indication: SINUSITIS
     Dosage: 300 MG, 2X/DAY
     Dates: start: 20110701
  7. INSULIN [Concomitant]
     Indication: DIABETES MELLITUS

REACTIONS (1)
  - BLOOD GLUCOSE INCREASED [None]
